FAERS Safety Report 12774170 (Version 1)
Quarter: 2016Q3

REPORT INFORMATION
  Report Type: Spontaneous
  Country: GB (occurrence: GB)
  Receive Date: 20160923
  Receipt Date: 20160923
  Transmission Date: 20161109
  Serious: Yes (Hospitalization, Other)
  Sender: FDA-Public Use
  Company Number: GB-ABBVIE-16K-167-1734776-00

PATIENT
  Age: 57 Year
  Sex: Female

DRUGS (1)
  1. HUMIRA [Suspect]
     Active Substance: ADALIMUMAB
     Indication: PSORIASIS
     Route: 058
     Dates: start: 2008, end: 2016

REACTIONS (4)
  - Circulatory collapse [Recovering/Resolving]
  - Blindness [Unknown]
  - Headache [Recovered/Resolved]
  - Cerebral small vessel ischaemic disease [Unknown]

NARRATIVE: CASE EVENT DATE: 201609
